FAERS Safety Report 8489019-1 (Version None)
Quarter: 2012Q2

REPORT INFORMATION
  Report Type: 
  Country: None (occurrence: None)
  Receive Date: 20120626
  Receipt Date: 20120614
  Transmission Date: 20120825
  Serious: Yes (Other)
  Sender: FDA-Public Use
  Company Number: 2012SP033190

PATIENT
  Age: 17 Year
  Sex: Female
  Weight: 50 kg

DRUGS (2)
  1. PEG-INTRON [Suspect]
     Indication: DISEASE RECURRENCE
     Dosage: 1 MCG;QW
     Dates: start: 20110413, end: 20120314
  2. DOXORUBICIN HCL [Suspect]
     Indication: PRODUCT USED FOR UNKNOWN INDICATION
     Dates: start: 20081002, end: 20090701

REACTIONS (4)
  - OSTEOSARCOMA RECURRENT [None]
  - THERAPEUTIC RESPONSE DECREASED [None]
  - EJECTION FRACTION DECREASED [None]
  - CARDIAC FUNCTION TEST ABNORMAL [None]
